FAERS Safety Report 13033755 (Version 1)
Quarter: 2016Q4

REPORT INFORMATION
  Report Type: Spontaneous
  Country: GB (occurrence: GB)
  Receive Date: 20161216
  Receipt Date: 20161216
  Transmission Date: 20170207
  Serious: Yes (Life-Threatening, Hospitalization, Other)
  Sender: FDA-Public Use
  Company Number: GB-TEVA-719536ACC

PATIENT
  Age: 22 Year
  Sex: Female

DRUGS (5)
  1. NITROFURANTOIN. [Concomitant]
     Active Substance: NITROFURANTOIN
     Indication: URINARY TRACT INFECTION
     Dosage: CAUSED DIARRHOEA
  2. SODIUM VALPROATE [Concomitant]
     Active Substance: VALPROATE SODIUM
     Route: 065
  3. TRIMETHOPRIM. [Suspect]
     Active Substance: TRIMETHOPRIM
     Indication: URINARY TRACT INFECTION
     Route: 048
     Dates: start: 20161019, end: 20161026
  4. NOVORAPID [Concomitant]
     Active Substance: INSULIN ASPART
  5. LANTUS [Concomitant]
     Active Substance: INSULIN GLARGINE
     Route: 065

REACTIONS (5)
  - Abnormal behaviour [Unknown]
  - Microangiopathic haemolytic anaemia [Recovered/Resolved]
  - Pallor [Unknown]
  - Lethargy [Unknown]
  - Decreased appetite [Unknown]

NARRATIVE: CASE EVENT DATE: 20161026
